FAERS Safety Report 14961493 (Version 1)
Quarter: 2018Q2

REPORT INFORMATION
  Report Type: Report from Study
  Country: MX (occurrence: MX)
  Receive Date: 20180601
  Receipt Date: 20180601
  Transmission Date: 20180711
  Serious: Yes (Other)
  Sender: FDA-Public Use
  Company Number: PHHY2018MX009568

PATIENT
  Sex: Female

DRUGS (5)
  1. EXFORGE HCT [Suspect]
     Active Substance: AMLODIPINE BESYLATE\HYDROCHLOROTHIAZIDE\VALSARTAN
     Indication: HYPERTENSION
     Dosage: 1 DF (5 MG AMLODIPINE, 12.5 MG HYDROCHLOROTHIAZIDE AND 160 MG VALSARTAN), QD
     Route: 048
  2. EXFORGE HCT [Suspect]
     Active Substance: AMLODIPINE BESYLATE\HYDROCHLOROTHIAZIDE\VALSARTAN
     Dosage: 1 DF (5 MG AMLODIPINE, 12.5 MG HYDROCHLOROTHIAZIDE AND 160 MG VALSARTAN), EVERY 3 DAYS
     Route: 048
  3. ASPIRIN PROTECT [Concomitant]
     Active Substance: ASPIRIN
     Indication: CARDIAC DISORDER
     Dosage: 1 DF, QD (6 MONTH AGO)
     Route: 065
  4. ALLOPURINOL. [Concomitant]
     Active Substance: ALLOPURINOL
     Indication: BLOOD CHOLESTEROL ABNORMAL
     Dosage: 1 DF, QD (2 YEARS AGO)
     Route: 065
  5. ALLOPURINOL. [Concomitant]
     Active Substance: ALLOPURINOL
     Indication: BLOOD TRIGLYCERIDES ABNORMAL

REACTIONS (5)
  - Inappropriate schedule of drug administration [Unknown]
  - Cardiomegaly [Not Recovered/Not Resolved]
  - Respiration abnormal [Recovering/Resolving]
  - Feeling of despair [Recovering/Resolving]
  - Fatigue [Recovering/Resolving]
